FAERS Safety Report 5325735-8 (Version None)
Quarter: 2007Q2

REPORT INFORMATION
  Report Type: 
  Country: None (occurrence: None)
  Receive Date: 20070509
  Receipt Date: 20070423
  Transmission Date: 20071010
  Serious: Yes (Other)
  Sender: FDA-Public Use
  Company Number: TRP_00940_2007

PATIENT
  Sex: Male
  Weight: 81.6021 kg

DRUGS (2)
  1. RIBAPAK/RIBAVIRIN/THREE RIVERS PHARMA (TRP) [Suspect]
     Indication: HEPATITIS C
     Dosage: 600 G BID ORAL
     Route: 048
     Dates: start: 20061124
  2. PEGASYS [Suspect]
     Indication: HEPATITIS C
     Dosage: 180 UG 1X/WEEK SUBCUTANEOUS
     Route: 058
     Dates: start: 20061124

REACTIONS (4)
  - DEPRESSED MOOD [None]
  - DYSPNOEA [None]
  - INSOMNIA [None]
  - NEPHROLITHIASIS [None]
